FAERS Safety Report 10937022 (Version 2)
Quarter: 2015Q2

REPORT INFORMATION
  Report Type: Spontaneous
  Country: US (occurrence: US)
  Receive Date: 20150321
  Receipt Date: 20150525
  Transmission Date: 20150821
  Serious: No
  Sender: FDA-Public Use
  Company Number: US-JNJFOC-20130211925

PATIENT
  Sex: Female
  Weight: 66.68 kg

DRUGS (2)
  1. SYNTHROID [Concomitant]
     Active Substance: LEVOTHYROXINE SODIUM
     Indication: THYROID DISORDER
     Route: 048
  2. TOPAMAX [Suspect]
     Active Substance: TOPIRAMATE
     Indication: MIGRAINE PROPHYLAXIS
     Route: 048
     Dates: start: 2005, end: 2006

REACTIONS (3)
  - Migraine [Not Recovered/Not Resolved]
  - Therapeutic response decreased [Unknown]
  - Affect lability [Recovered/Resolved]

NARRATIVE: CASE EVENT DATE: 2005
